FAERS Safety Report 4420080-7 (Version None)
Quarter: 2004Q3

REPORT INFORMATION
  Report Type: 
  Country: None (occurrence: None)
  Receive Date: 20040804
  Receipt Date: 20040708
  Transmission Date: 20050211
  Serious: Yes (Hospitalization, Other)
  Sender: FDA-Public Use
  Company Number: GBT020400646

PATIENT
  Age: 70 Year
  Sex: Male
  Weight: 75 kg

DRUGS (11)
  1. PEMETREXED (LY231514) [Suspect]
     Indication: GASTRIC CANCER
     Dosage: 605 MG
     Dates: start: 20011214, end: 20020109
  2. DOCETAXEL [Suspect]
     Indication: GASTRIC CANCER
     Dosage: 46.5 MG
     Dates: start: 20011207, end: 20020109
  3. FENTANYL [Concomitant]
  4. FOLIC ACID [Concomitant]
  5. HALOPERIDOL [Concomitant]
  6. ACETAMINOPHEN [Concomitant]
  7. DO-DANTHRAMER [Concomitant]
  8. DEXAMETHASONE [Concomitant]
  9. COMFEEL [Concomitant]
  10. DIFFLAM (BENZYDAMINE HYDROCHLORIDE) [Concomitant]
  11. CORSODYL (CHLOHEXIDINE GLUCONATE) [Concomitant]

REACTIONS (9)
  - ABDOMINAL PAIN [None]
  - ANAEMIA [None]
  - ASTHENIA [None]
  - CONDITION AGGRAVATED [None]
  - CONSTIPATION [None]
  - GASTRIC CANCER [None]
  - INTERVERTEBRAL DISC PROTRUSION [None]
  - MALIGNANT NEOPLASM PROGRESSION [None]
  - URINARY HESITATION [None]
